FAERS Safety Report 20867756 (Version 1)
Quarter: 2022Q2

REPORT INFORMATION
  Report Type: Spontaneous
  Country: US (occurrence: US)
  Receive Date: 20220524
  Receipt Date: 20220524
  Transmission Date: 20220721
  Serious: Yes (Hospitalization, Other)
  Sender: FDA-Public Use
  Company Number: US-Fresenius Kabi-FK202206075

PATIENT
  Age: 64 Year
  Sex: Male

DRUGS (2)
  1. VALPROATE [Suspect]
     Active Substance: VALPROIC ACID
     Indication: Aggression
     Dosage: WAS STARTED AND INCREASED TO 3 GM/DAY
     Route: 065
  2. QUETIAPINE FUMARATE [Concomitant]
     Active Substance: QUETIAPINE FUMARATE
     Indication: Behaviour disorder
     Route: 065

REACTIONS (2)
  - Encephalopathy [Recovering/Resolving]
  - Condition aggravated [Recovering/Resolving]
